FAERS Safety Report 18214959 (Version 4)
Quarter: 2020Q4

REPORT INFORMATION
  Report Type: Report from Study
  Country: None (occurrence: US)
  Receive Date: 20200831
  Receipt Date: 20201013
  Transmission Date: 20210113
  Serious: No
  Sender: FDA-Public Use
  Company Number: US-BIOVITRUM-2020US4610

PATIENT
  Age: 5 Year
  Sex: Female

DRUGS (5)
  1. KINERET [Suspect]
     Active Substance: ANAKINRA
     Route: 058
     Dates: start: 20200818
  2. TYLENOL [Concomitant]
     Active Substance: ACETAMINOPHEN
  3. KINERET [Suspect]
     Active Substance: ANAKINRA
     Indication: DISEASE SUSCEPTIBILITY
     Dosage: 0.24ML (35.82 MG)
     Route: 058
     Dates: start: 20200820
  4. ZOFRAN [Concomitant]
     Active Substance: ONDANSETRON HYDROCHLORIDE
  5. BENADRYL [Concomitant]
     Active Substance: DIPHENHYDRAMINE HYDROCHLORIDE

REACTIONS (10)
  - Injection site discolouration [Unknown]
  - Intentional product misuse [Unknown]
  - Injection site urticaria [Unknown]
  - Injection site reaction [Unknown]
  - Burning sensation [Unknown]
  - Injection site erythema [Unknown]
  - Injection site warmth [Unknown]
  - Urticaria [Unknown]
  - Off label use [Recovered/Resolved]
  - Injection site swelling [Unknown]

NARRATIVE: CASE EVENT DATE: 20200818
